FAERS Safety Report 10661146 (Version 1)
Quarter: 2014Q4

REPORT INFORMATION
  Report Type: Spontaneous
  Country: US (occurrence: None)
  Receive Date: 20141216
  Receipt Date: 20141216
  Transmission Date: 20150529
  Serious: Yes (Disabling)
  Sender: FDA-Public Use
  Company Number: None

PATIENT
  Age: 14 Year
  Sex: Male
  Weight: 49.9 kg

DRUGS (1)
  1. METHYLPHENIDATE [Suspect]
     Active Substance: METHYLPHENIDATE
     Indication: ATTENTION DEFICIT/HYPERACTIVITY DISORDER
     Dosage: TAKE TWO TABLETS EVERY MORNING; ONCE DAILY
     Route: 048
     Dates: start: 20141008, end: 20141214

REACTIONS (8)
  - Educational problem [None]
  - Depression [None]
  - Disturbance in attention [None]
  - Product substitution issue [None]
  - Mood swings [None]
  - Product quality issue [None]
  - Anger [None]
  - Social avoidant behaviour [None]

NARRATIVE: CASE EVENT DATE: 20141208
